FAERS Safety Report 7154381-9 (Version None)
Quarter: 2010Q4

REPORT INFORMATION
  Report Type: 
  Country: None (occurrence: None)
  Receive Date: 20101213
  Receipt Date: 20101206
  Transmission Date: 20110411
  Serious: Yes (Hospitalization)
  Sender: FDA-Public Use
  Company Number: US-US-EMD SERONO, INC.-235788K09USA

PATIENT
  Sex: Female
  Weight: 77 kg

DRUGS (10)
  1. REBIF [Suspect]
     Indication: MULTIPLE SCLEROSIS
     Route: 058
     Dates: start: 20030526
  2. PARCOPA [Concomitant]
     Indication: PARKINSON'S DISEASE
  3. STALEVO 100 [Concomitant]
     Indication: PARKINSON'S DISEASE
  4. PAXIL [Concomitant]
     Indication: DEPRESSION
  5. PAXIL [Concomitant]
     Indication: FEELING ABNORMAL
  6. XANAX [Concomitant]
     Indication: DEPRESSION
  7. XANAX [Concomitant]
     Indication: FEELING ABNORMAL
  8. XANAX [Concomitant]
     Indication: SLEEP DISORDER
  9. ARTANE [Concomitant]
     Indication: PARKINSON'S DISEASE
  10. SINEMET [Concomitant]
     Indication: PARKINSON'S DISEASE

REACTIONS (8)
  - ARTHRITIS [None]
  - CLOSTRIDIAL INFECTION [None]
  - DRUG HYPERSENSITIVITY [None]
  - EXOSTOSIS [None]
  - ILEUS [None]
  - MALAISE [None]
  - PARKINSONISM [None]
  - TENDONITIS [None]
